FAERS Safety Report 7359676-1 (Version None)
Quarter: 2011Q1

REPORT INFORMATION
  Report Type: 
  Country: None (occurrence: None)
  Receive Date: 20110317
  Receipt Date: 20110304
  Transmission Date: 20110831
  Serious: Yes (Hospitalization, Other)
  Sender: FDA-Public Use
  Company Number: PHHY2011US14839

PATIENT
  Sex: Female
  Weight: 110.68 kg

DRUGS (14)
  1. HYDROCORTISONE [Concomitant]
     Dosage: UNK
  2. ALTACE [Concomitant]
     Dosage: UNK
  3. OCUVITE LUTEIN [Concomitant]
     Dosage: UNK
  4. VITAMIN B-12 [Concomitant]
     Dosage: UNK
  5. PROAIR HFA [Concomitant]
  6. EXJADE [Suspect]
     Indication: NEOPLASM
     Dosage: 2250 MG DAILY
     Route: 048
     Dates: start: 20110209
  7. LORTAB [Concomitant]
     Dosage: UNK
  8. TRAVATAN [Concomitant]
     Dosage: UNK
  9. LASIX [Concomitant]
     Dosage: UNK
  10. GLUCOVANCE [Concomitant]
     Dosage: UNK
  11. COLACE [Concomitant]
     Dosage: UNK
  12. VITAMIN B6 [Concomitant]
     Dosage: UNK
  13. PREVACID [Concomitant]
     Dosage: UNK
  14. DACOGEN [Concomitant]

REACTIONS (6)
  - BLOOD GLUCOSE DECREASED [None]
  - NAUSEA [None]
  - ABDOMINAL DISTENSION [None]
  - ABDOMINAL PAIN [None]
  - RASH GENERALISED [None]
  - PYREXIA [None]
